FAERS Safety Report 9059600 (Version 1)
Quarter: 2013Q1

REPORT INFORMATION
  Report Type: Spontaneous
  Country: US (occurrence: US)
  Receive Date: 20130212
  Receipt Date: 20130212
  Transmission Date: 20140127
  Serious: Yes (Other)
  Sender: FDA-Public Use
  Company Number: US-GLENMARK GENERICS INC.-2013GMK004922

PATIENT
  Sex: Female

DRUGS (1)
  1. NORGESTIMATE + EE [Suspect]
     Indication: CONTRACEPTION
     Dosage: UNK

REACTIONS (5)
  - Unintended pregnancy [Recovered/Resolved]
  - Product packaging issue [None]
  - Drug effect decreased [None]
  - Pregnancy on oral contraceptive [None]
  - Exposure during pregnancy [None]
